FAERS Safety Report 5923371-3 (Version None)
Quarter: 2008Q4

REPORT INFORMATION
  Report Type: 
  Country: None (occurrence: None)
  Receive Date: 20081020
  Receipt Date: 20080917
  Transmission Date: 20090506
  Serious: No
  Sender: FDA-Public Use
  Company Number: US-BAYER-200831789NA

PATIENT
  Sex: Female
  Weight: 66 kg

DRUGS (1)
  1. CLIMARA [Suspect]
     Indication: DRUG USE FOR UNKNOWN INDICATION
     Route: 062

REACTIONS (5)
  - HAIR DISORDER [None]
  - HYPERAESTHESIA [None]
  - NERVOUSNESS [None]
  - PRODUCT QUALITY ISSUE [None]
  - TOOTH FRACTURE [None]
